FAERS Safety Report 23407906 (Version 6)
Quarter: 2024Q2

REPORT INFORMATION
  Report Type: Spontaneous
  Country: DE (occurrence: DE)
  Receive Date: 20240117
  Receipt Date: 20240418
  Transmission Date: 20240716
  Serious: Yes (Other)
  Sender: FDA-Public Use
  Company Number: DE-IPSEN Group, Research and Development-2024-00499

PATIENT
  Age: 69 Year
  Sex: Male

DRUGS (2)
  1. NIVOLUMAB [Suspect]
     Active Substance: NIVOLUMAB
     Indication: Renal cell carcinoma
     Dates: start: 202211
  2. CABOMETYX [Suspect]
     Active Substance: CABOZANTINIB S-MALATE
     Indication: Renal cell carcinoma
     Dates: start: 202211

REACTIONS (6)
  - Hypoaesthesia [Unknown]
  - Transient ischaemic attack [Unknown]
  - Diarrhoea [Unknown]
  - Adverse event [Unknown]
  - Weight decreased [Unknown]
  - Renal cancer metastatic [Unknown]

NARRATIVE: CASE EVENT DATE: 20221201
